FAERS Safety Report 8419795-5 (Version None)
Quarter: 2012Q2

REPORT INFORMATION
  Report Type: 
  Country: None (occurrence: None)
  Receive Date: 20120607
  Receipt Date: 20120523
  Transmission Date: 20120825
  Serious: No
  Sender: FDA-Public Use
  Company Number: US-ASTRAZENECA-2012SE33325

PATIENT
  Age: 4 Year
  Sex: Male

DRUGS (1)
  1. PULMICORT [Suspect]
     Route: 055

REACTIONS (4)
  - ABNORMAL BEHAVIOUR [None]
  - PERSONALITY DISORDER [None]
  - LEARNING DISORDER [None]
  - ANGER [None]
